FAERS Safety Report 18563289 (Version 2)
Quarter: 2020Q4

REPORT INFORMATION
  Report Type: Spontaneous
  Country: JP (occurrence: JP)
  Receive Date: 20201201
  Receipt Date: 20201216
  Transmission Date: 20210114
  Serious: Yes (Hospitalization)
  Sender: FDA-Public Use
  Company Number: JP-ROCHE-2721844

PATIENT
  Age: 76 Year
  Sex: Female

DRUGS (3)
  1. EDIROL [Concomitant]
     Active Substance: ELDECALCITOL
     Indication: PRODUCT USED FOR UNKNOWN INDICATION
     Dates: start: 20191009, end: 20201109
  2. BONVIVA [Suspect]
     Active Substance: IBANDRONATE SODIUM
     Dosage: SECOND DOSE
     Route: 042
     Dates: start: 20201109, end: 20201109
  3. BONVIVA [Suspect]
     Active Substance: IBANDRONATE SODIUM
     Indication: OSTEOPOROSIS
     Route: 042
     Dates: start: 20201006, end: 20201109

REACTIONS (5)
  - Pyrexia [Unknown]
  - Drug eruption [Unknown]
  - Arthralgia [Unknown]
  - Oedema peripheral [Unknown]
  - Eyelid oedema [Unknown]

NARRATIVE: CASE EVENT DATE: 20201110
